FAERS Safety Report 15795963 (Version 3)
Quarter: 2019Q3

REPORT INFORMATION
  Report Type: Spontaneous
  Country: US (occurrence: US)
  Receive Date: 20190107
  Receipt Date: 20190708
  Transmission Date: 20191004
  Serious: No
  Sender: FDA-Public Use
  Company Number: US-MYLANLABS-2018M1093360

PATIENT
  Age: 47 Year
  Sex: Female
  Weight: 75 kg

DRUGS (14)
  1. BUPROPION. [Suspect]
     Active Substance: BUPROPION
     Dosage: 1 DOSAGE FORM
     Route: 048
  2. GABAPENTIN. [Suspect]
     Active Substance: GABAPENTIN
     Indication: PRODUCT USED FOR UNKNOWN INDICATION
     Dosage: 300 MILLIGRAM, TID
     Route: 048
  3. BOTOX [Suspect]
     Active Substance: ONABOTULINUMTOXINA
     Indication: PRODUCT USED FOR UNKNOWN INDICATION
     Dosage: UNK
  4. ACETAMINOPHEN W/HYDROCODONE [Suspect]
     Active Substance: ACETAMINOPHEN\HYDROCODONE
     Dosage: UNK (7.5-325MG)
     Route: 048
  5. EMSAM [Suspect]
     Active Substance: SELEGILINE
     Indication: PRODUCT USED FOR UNKNOWN INDICATION
     Dosage: 1 DOSAGE FORM, QD
     Route: 062
  6. MELOXICAM. [Suspect]
     Active Substance: MELOXICAM
     Indication: PRODUCT USED FOR UNKNOWN INDICATION
     Dosage: 1 DOSAGE FORM, BID
     Route: 048
  7. WELLBUTRIN [Concomitant]
     Active Substance: BUPROPION HYDROCHLORIDE
     Dosage: UNK
  8. MELOXICAM. [Suspect]
     Active Substance: MELOXICAM
     Dosage: 1 DOSAGE FORM
     Route: 048
  9. BUPROPION. [Suspect]
     Active Substance: BUPROPION
     Indication: PRODUCT USED FOR UNKNOWN INDICATION
     Dosage: 150 MILLIGRAM, BID
     Route: 048
  10. RANITIDINE. [Suspect]
     Active Substance: RANITIDINE
     Indication: HEADACHE
     Dosage: UNK, PRN
  11. EMSAM [Suspect]
     Active Substance: SELEGILINE
     Dosage: 1 DOSAGE FORM
     Route: 062
  12. GABAPENTIN. [Suspect]
     Active Substance: GABAPENTIN
     Dosage: UNK
     Route: 048
  13. ACETAMINOPHEN W/HYDROCODONE [Suspect]
     Active Substance: ACETAMINOPHEN\HYDROCODONE
     Indication: PRODUCT USED FOR UNKNOWN INDICATION
     Dosage: 7.5-325MG, Q4H
     Route: 048
  14. RANITIDINE. [Suspect]
     Active Substance: RANITIDINE
     Dosage: 1 DOSAGE FORM
     Route: 048

REACTIONS (1)
  - False positive investigation result [Recovered/Resolved]

NARRATIVE: CASE EVENT DATE: 20171215
